FAERS Safety Report 20719838 (Version 3)
Quarter: 2023Q2

REPORT INFORMATION
  Report Type: Report from Study
  Country: US (occurrence: US)
  Receive Date: 20220418
  Receipt Date: 20230418
  Transmission Date: 20230722
  Serious: Yes (Other)
  Sender: FDA-Public Use
  Company Number: US-RPC-1063-MS-001-1221008-20211104-0001SG

PATIENT
  Sex: Female
  Weight: 60 kg

DRUGS (6)
  1. ALBUTEROL [Concomitant]
     Active Substance: ALBUTEROL
     Indication: Asthma
     Dosage: FREQUENCY TEXT: PRN?90 UG X PRN
     Route: 055
     Dates: start: 2017
  2. ATORVASTATIN [Concomitant]
     Active Substance: ATORVASTATIN
     Indication: Hypercholesterolaemia
     Dosage: 20 MG X 1 X 1 DAYS
     Route: 048
     Dates: start: 2011
  3. CALCIUM CARBONATE [Concomitant]
     Active Substance: CALCIUM CARBONATE
     Indication: Prophylaxis
     Dosage: 500 MG X 2 X 1 DAYS
     Route: 048
     Dates: start: 202103
  4. ERGOCALCIFEROL [Concomitant]
     Active Substance: ERGOCALCIFEROL
     Indication: Vitamin D deficiency
     Dosage: 50000 U X 1 X 1 DAYS
     Route: 048
     Dates: start: 202103
  5. IBUPROFEN [Concomitant]
     Active Substance: IBUPROFEN
     Indication: Migraine
     Dosage: FREQUENCY TEXT: PRN?200 MG X PRN
     Route: 048
     Dates: start: 1995
  6. LORATADINE [Concomitant]
     Active Substance: LORATADINE
     Indication: Seasonal allergy
     Dosage: FREQUENCY TEXT: PRN?10 MG X PRN
     Route: 048
     Dates: start: 2017

REACTIONS (1)
  - Papillary thyroid cancer [Recovering/Resolving]

NARRATIVE: CASE EVENT DATE: 20210924
